FAERS Safety Report 7983370-7 (Version None)
Quarter: 2011Q4

REPORT INFORMATION
  Report Type: 
  Country: None (occurrence: None)
  Receive Date: 20111215
  Receipt Date: 20111212
  Transmission Date: 20120403
  Serious: Yes (Other)
  Sender: FDA-Public Use
  Company Number: US-CELGENEUS-163-21880-11090827

PATIENT
  Sex: Female

DRUGS (2)
  1. REVLIMID [Suspect]
     Dosage: 25 MILLIGRAM
     Route: 048
     Dates: start: 20110707
  2. REVLIMID [Suspect]
     Dosage: 20 MILLIGRAM
     Route: 048
     Dates: start: 20110707

REACTIONS (4)
  - RASH [None]
  - SKIN HAEMORRHAGE [None]
  - GLOSSODYNIA [None]
  - CONTUSION [None]
